FAERS Safety Report 6782316-7 (Version None)
Quarter: 2010Q2

REPORT INFORMATION
  Report Type: 
  Country: None (occurrence: None)
  Receive Date: 20100616
  Receipt Date: 20100609
  Transmission Date: 20101027
  Serious: Yes (Other)
  Sender: FDA-Public Use
  Company Number: DSA_43256_2010

PATIENT
  Sex: Female

DRUGS (2)
  1. XENAZINE [Suspect]
     Indication: HUNTINGTON'S CHOREA
     Dosage: 25 MG TID ORAL
     Route: 048
     Dates: start: 20090624
  2. ATIVAN [Suspect]
     Indication: DRUG USE FOR UNKNOWN INDICATION
     Dosage: DF
     Dates: end: 20100601

REACTIONS (5)
  - APHASIA [None]
  - DECREASED APPETITE [None]
  - DYSARTHRIA [None]
  - DYSKINESIA [None]
  - FALL [None]
